FAERS Safety Report 12508499 (Version 1)
Quarter: 2016Q2

REPORT INFORMATION
  Report Type: Spontaneous
  Country: US (occurrence: US)
  Receive Date: 20160629
  Receipt Date: 20160629
  Transmission Date: 20160815
  Serious: Yes (Hospitalization)
  Sender: FDA-Public Use
  Company Number: US-EISAI MEDICAL RESEARCH-EC-2016-017902

PATIENT
  Age: 49 Year
  Sex: Female
  Weight: 80 kg

DRUGS (6)
  1. KEPPRA [Concomitant]
     Active Substance: LEVETIRACETAM
     Indication: SEIZURE
     Dosage: UNKNOWN
     Route: 065
  2. PROZAC [Concomitant]
     Active Substance: FLUOXETINE HYDROCHLORIDE
     Indication: CRANIOCEREBRAL INJURY
     Dosage: UNKNOWN
     Route: 065
  3. FYCOMPA [Suspect]
     Active Substance: PERAMPANEL
     Indication: COMPLEX PARTIAL SEIZURES
     Route: 048
     Dates: start: 20160616, end: 20160618
  4. HYDROCODONE [Concomitant]
     Active Substance: HYDROCODONE
     Indication: PAIN
     Dosage: UNKNOWN
     Route: 065
  5. WELLBUTRIN [Concomitant]
     Active Substance: BUPROPION HYDROCHLORIDE
     Indication: DEPRESSION
     Dosage: UNKNOWN
     Route: 065
  6. SKELAXIN [Concomitant]
     Active Substance: METAXALONE
     Indication: MUSCLE RELAXANT THERAPY
     Dosage: UNKNOWN
     Route: 065

REACTIONS (3)
  - Headache [Recovering/Resolving]
  - Gait disturbance [Recovering/Resolving]
  - Eyelid disorder [Not Recovered/Not Resolved]

NARRATIVE: CASE EVENT DATE: 20160618
